FAERS Safety Report 7508352-0 (Version None)
Quarter: 2011Q2

REPORT INFORMATION
  Report Type: 
  Country: None (occurrence: None)
  Receive Date: 20110527
  Receipt Date: 20110523
  Transmission Date: 20111010
  Serious: No
  Sender: FDA-Public Use
  Company Number: US-PFIZER INC-2011110886

PATIENT
  Sex: Female
  Weight: 73 kg

DRUGS (3)
  1. DEPO-PROVERA [Suspect]
     Dosage: UNK
     Dates: start: 20081001, end: 20100101
  2. DEPO-PROVERA [Suspect]
     Indication: CONTRACEPTION
     Dosage: UNK
     Dates: start: 19940301, end: 20060701
  3. LYBREL [Concomitant]
     Indication: CONTRACEPTION
     Dosage: UNK
     Dates: start: 20100101, end: 20101001

REACTIONS (1)
  - WEIGHT INCREASED [None]
